FAERS Safety Report 14223702 (Version 4)
Quarter: 2018Q4

REPORT INFORMATION
  Report Type: Report from Study
  Country: FR (occurrence: FR)
  Receive Date: 20171125
  Receipt Date: 20181114
  Transmission Date: 20190204
  Serious: Yes (Other)
  Sender: FDA-Public Use
  Company Number: FR-ACCORD-061381

PATIENT
  Age: 66 Year
  Sex: Female

DRUGS (3)
  1. IMMUNOGLOBULIN HUMAN NORMAL [Suspect]
     Active Substance: HUMAN IMMUNOGLOBULIN G
     Indication: IMMUNE-MEDIATED NECROTISING MYOPATHY
     Dosage: 2 GRAM PER KILOGRAM
     Route: 042
     Dates: start: 201506
  2. METHOTREXATE. [Suspect]
     Active Substance: METHOTREXATE
     Indication: IMMUNE-MEDIATED NECROTISING MYOPATHY
     Route: 058
     Dates: start: 2014, end: 201507
  3. PREDNISONE. [Suspect]
     Active Substance: PREDNISONE
     Indication: IMMUNE-MEDIATED NECROTISING MYOPATHY
     Dates: start: 201304

REACTIONS (6)
  - Rebound effect [Recovering/Resolving]
  - Product use issue [Unknown]
  - Blood creatine phosphokinase increased [Recovering/Resolving]
  - Blood disorder [Unknown]
  - Off label use [Unknown]
  - Motor dysfunction [Recovering/Resolving]

NARRATIVE: CASE EVENT DATE: 201507
